FAERS Safety Report 19002400 (Version 1)
Quarter: 2021Q1

REPORT INFORMATION
  Report Type: Spontaneous
  Country: US (occurrence: US)
  Receive Date: 20210312
  Receipt Date: 20210312
  Transmission Date: 20210420
  Serious: Yes (Hospitalization)
  Sender: FDA-Public Use
  Company Number: None

PATIENT
  Age: 63 Year
  Sex: Male
  Weight: 108.2 kg

DRUGS (2)
  1. CARBOPLATIN. [Suspect]
     Active Substance: CARBOPLATIN
     Dates: end: 20201209
  2. TAXOL [Suspect]
     Active Substance: PACLITAXEL
     Dates: end: 20201209

REACTIONS (10)
  - Chills [None]
  - Incontinence [None]
  - Atrial fibrillation [None]
  - Dysphagia [None]
  - Blood creatinine increased [None]
  - Vomiting [None]
  - Fatigue [None]
  - Diarrhoea [None]
  - Nausea [None]
  - Anaemia [None]

NARRATIVE: CASE EVENT DATE: 20201226
